FAERS Safety Report 7310545-2 (Version None)
Quarter: 2011Q1

REPORT INFORMATION
  Report Type: 
  Country: None (occurrence: None)
  Receive Date: 20110210
  Receipt Date: 20110120
  Transmission Date: 20110831
  Serious: Yes (Death)
  Sender: FDA-Public Use
  Company Number: AE11-005

PATIENT
  Age: 47 Year
  Sex: Male

DRUGS (5)
  1. ETHANOL [Suspect]
  2. PHENOBARBITAL [Suspect]
  3. METHADONE [Suspect]
  4. LORCET-HD [Suspect]
  5. ALPRAZOLAM [Suspect]

REACTIONS (1)
  - CARDIO-RESPIRATORY ARREST [None]
